FAERS Safety Report 17142324 (Version 2)
Quarter: 2020Q1

REPORT INFORMATION
  Report Type: Report from Study
  Country: US (occurrence: US)
  Receive Date: 20191211
  Receipt Date: 20200317
  Transmission Date: 20200409
  Serious: Yes (Other)
  Sender: FDA-Public Use
  Company Number: US-INCYTE CORPORATION-2019IN010996

PATIENT

DRUGS (2)
  1. JAKAFI [Suspect]
     Active Substance: RUXOLITINIB
     Indication: MYELOPROLIFERATIVE NEOPLASM
     Dosage: 10 MILLIGRAM, BID
     Route: 065
     Dates: start: 20191007
  2. JAKAFI [Suspect]
     Active Substance: RUXOLITINIB
     Indication: MYELODYSPLASTIC SYNDROME
     Dosage: 10 MILLIGRAM, BID
     Route: 048

REACTIONS (8)
  - Splenomegaly [Unknown]
  - Sinusitis [Unknown]
  - Influenza [Unknown]
  - White blood cell count abnormal [Unknown]
  - Seasonal allergy [Unknown]
  - Off label use [Unknown]
  - Haemoglobin decreased [Unknown]
  - Abdominal pain [Unknown]
